FAERS Safety Report 18753131 (Version 6)
Quarter: 2021Q2

REPORT INFORMATION
  Report Type: Spontaneous
  Country: IE (occurrence: IE)
  Receive Date: 20210118
  Receipt Date: 20210608
  Transmission Date: 20210717
  Serious: Yes (Other)
  Sender: FDA-Public Use
  Company Number: IE-MYLANLABS-2020M1105220

PATIENT
  Age: 39 Year
  Sex: Male

DRUGS (1)
  1. CLOZARIL [Suspect]
     Active Substance: CLOZAPINE
     Indication: SCHIZOPHRENIA
     Dosage: UNK
     Route: 048
     Dates: start: 20080618

REACTIONS (8)
  - Neutropenia [Not Recovered/Not Resolved]
  - White blood cell count decreased [Not Recovered/Not Resolved]
  - Off label use [Unknown]
  - Leukocytosis [Recovered/Resolved]
  - Differential white blood cell count abnormal [Unknown]
  - Thrombocytopenia [Not Recovered/Not Resolved]
  - Haemoglobin decreased [Unknown]
  - Neutrophilia [Recovered/Resolved]

NARRATIVE: CASE EVENT DATE: 20210112
